FAERS Safety Report 25822946 (Version 1)
Quarter: 2025Q3

REPORT INFORMATION
  Report Type: Spontaneous
  Country: US (occurrence: US)
  Receive Date: 20250919
  Receipt Date: 20250919
  Transmission Date: 20251021
  Serious: Yes (Other)
  Sender: STRIDES
  Company Number: US-STRIDES PHARMA UK LTD.-2025SP011652

PATIENT
  Age: 40 Year
  Sex: Female

DRUGS (9)
  1. PREDNISONE [Suspect]
     Active Substance: PREDNISONE
     Indication: Thyroiditis fibrous chronic
     Route: 065
  2. PREDNISONE [Suspect]
     Active Substance: PREDNISONE
     Route: 065
  3. MYCOPHENOLATE MOFETIL [Suspect]
     Active Substance: MYCOPHENOLATE MOFETIL
     Indication: Thyroiditis fibrous chronic
     Route: 065
  4. LEVOTHYROXINE [Suspect]
     Active Substance: LEVOTHYROXINE
     Indication: Thyroid hormone replacement therapy
     Route: 065
  5. LEVOTHYROXINE [Suspect]
     Active Substance: LEVOTHYROXINE
     Indication: Hypothyroidism
     Route: 065
  6. TAMOXIFEN [Suspect]
     Active Substance: TAMOXIFEN
     Indication: Thyroiditis fibrous chronic
     Route: 065
  7. TAMOXIFEN [Suspect]
     Active Substance: TAMOXIFEN
     Route: 065
  8. RALOXIFENE [Suspect]
     Active Substance: RALOXIFENE
     Indication: Thyroiditis fibrous chronic
     Route: 065
  9. RITUXIMAB [Suspect]
     Active Substance: RITUXIMAB
     Indication: Thyroiditis fibrous chronic
     Route: 065

REACTIONS (6)
  - Condition aggravated [Unknown]
  - Therapy non-responder [Unknown]
  - Weight increased [Unknown]
  - Mood altered [Unknown]
  - Dyspnoea [Unknown]
  - Off label use [Unknown]
